FAERS Safety Report 4819496-6 (Version None)
Quarter: 2005Q4

REPORT INFORMATION
  Report Type: 
  Country: None (occurrence: None)
  Receive Date: 20051031
  Receipt Date: 20050629
  Transmission Date: 20060501
  Serious: No
  Sender: FDA-Public Use
  Company Number: 2005PV000183

PATIENT
  Age: 70 Year
  Sex: Female
  Weight: 102.0593 kg

DRUGS (14)
  1. SYMLIN [Suspect]
     Indication: DIABETES MELLITUS NON-INSULIN-DEPENDENT
     Dosage: 360 MCG; X1; SC; 60 MCG; TID; SC
     Route: 058
     Dates: start: 20050629, end: 20050629
  2. SYMLIN [Suspect]
     Indication: DIABETES MELLITUS NON-INSULIN-DEPENDENT
     Dosage: 360 MCG; X1; SC; 60 MCG; TID; SC
     Route: 058
     Dates: start: 20050629
  3. HUMALOG [Concomitant]
  4. AVAPRO [Concomitant]
  5. DILTIAZEM HCL [Concomitant]
  6. SINGULAIR ^DIECKMANN^ [Concomitant]
  7. DIGITEK [Concomitant]
  8. ARIMIDEX [Concomitant]
  9. PAXIL [Concomitant]
  10. FOLIC ACID [Concomitant]
  11. ASPIRIN [Concomitant]
  12. LANTUS [Concomitant]
  13. AVANDIA [Concomitant]
  14. HUMALOG [Concomitant]

REACTIONS (3)
  - ACCIDENTAL OVERDOSE [None]
  - FEAR [None]
  - MEDICATION ERROR [None]
